FAERS Safety Report 24762218 (Version 1)
Quarter: 2024Q4

REPORT INFORMATION
  Report Type: Spontaneous
  Country: US (occurrence: US)
  Receive Date: 20241221
  Receipt Date: 20241221
  Transmission Date: 20250115
  Serious: Yes (Life-Threatening, Hospitalization, Other)
  Sender: CELLTRION
  Company Number: US-CELLTRION INC.-2024US007642

PATIENT

DRUGS (3)
  1. RITUXIMAB [Suspect]
     Active Substance: RITUXIMAB
     Indication: Follicular lymphoma
     Dosage: HE LAST RECEIVED A DOSE OF RITUXIMAB ONE WEEK PRIOR TO PRESENTATION.
  2. LENALIDOMIDE [Suspect]
     Active Substance: LENALIDOMIDE
     Indication: Follicular lymphoma
  3. BENDAMUSTINE [Suspect]
     Active Substance: BENDAMUSTINE
     Indication: Follicular lymphoma
     Dosage: UNK

REACTIONS (2)
  - COVID-19 pneumonia [Recovered/Resolved]
  - Post-acute COVID-19 syndrome [Recovered/Resolved]
